FAERS Safety Report 7774826-0 (Version None)
Quarter: 2011Q3

REPORT INFORMATION
  Report Type: 
  Country: None (occurrence: None)
  Receive Date: 20110923
  Receipt Date: 20110919
  Transmission Date: 20111222
  Serious: Yes (Hospitalization)
  Sender: FDA-Public Use
  Company Number: US-SANOFI-AVENTIS-2011SA061978

PATIENT
  Age: 37 Year
  Sex: Female
  Weight: 100.7 kg

DRUGS (16)
  1. CARBOPLATIN [Suspect]
     Route: 041
     Dates: start: 20110628, end: 20110628
  2. TYLENOL-500 [Concomitant]
     Indication: PAIN
     Route: 048
  3. INVESTIGATIONAL DRUG [Suspect]
     Route: 065
     Dates: start: 20110726
  4. GEMCITABINE [Suspect]
     Route: 041
     Dates: start: 20100216, end: 20100216
  5. SAR240550 [Suspect]
     Route: 041
     Dates: start: 20100216, end: 20100216
  6. LASIX [Suspect]
     Indication: FLUID RETENTION
     Route: 048
     Dates: start: 20110726
  7. REGLAN [Concomitant]
     Indication: CHOLELITHIASIS
     Route: 048
     Dates: start: 20110209
  8. XELODA [Suspect]
     Indication: CHEMOTHERAPY MULTIPLE AGENTS SYSTEMIC
     Route: 048
     Dates: start: 20110726
  9. XANAX [Concomitant]
     Indication: ANXIETY
     Route: 048
     Dates: start: 20110209
  10. GEMCITABINE [Suspect]
     Route: 041
     Dates: start: 20101005, end: 20101005
  11. SAR240550 [Suspect]
     Route: 041
     Dates: start: 20110701, end: 20110701
  12. I.V. SOLUTIONS [Concomitant]
     Indication: FLUID REPLACEMENT
     Route: 041
     Dates: start: 20110728, end: 20110728
  13. BENADRYL [Concomitant]
     Indication: ALLERGY PROPHYLAXIS
     Route: 042
     Dates: start: 20110726, end: 20110726
  14. ROXICODONE [Concomitant]
     Dates: start: 20100917
  15. CARBOPLATIN [Suspect]
     Route: 041
     Dates: start: 20100216, end: 20100216
  16. NEXIUM [Concomitant]
     Route: 048
     Dates: start: 20110209

REACTIONS (2)
  - SYNCOPE [None]
  - DIZZINESS [None]
